FAERS Safety Report 5418388-1 (Version None)
Quarter: 2007Q3

REPORT INFORMATION
  Report Type: 
  Country: None (occurrence: None)
  Receive Date: 20070718
  Receipt Date: 20060613
  Transmission Date: 20080115
  Serious: Yes (Hospitalization, Other)
  Sender: FDA-Public Use
  Company Number: 2005161548

PATIENT
  Age: 44 Year
  Sex: Male

DRUGS (5)
  1. CELEBREX [Suspect]
     Indication: ARTHRALGIA
     Dosage: 120 MG,
  2. CELEBREX [Suspect]
     Indication: PAIN
     Dosage: 120 MG,
  3. CELEBREX [Suspect]
     Indication: PAIN IN EXTREMITY
     Dosage: 120 MG,
  4. BEXTRA [Suspect]
     Indication: PAIN
  5. VIOXX [Suspect]
     Indication: ILL-DEFINED DISORDER

REACTIONS (2)
  - EMBOLISM [None]
  - MYOCARDIAL INFARCTION [None]
